FAERS Safety Report 11691781 (Version 2)
Quarter: 2016Q2

REPORT INFORMATION
  Report Type: Spontaneous
  Country: US (occurrence: US)
  Receive Date: 20151103
  Receipt Date: 20160418
  Transmission Date: 20160815
  Serious: No
  Sender: FDA-Public Use
  Company Number: US-OTSUKA-2015_009351

PATIENT
  Sex: Male

DRUGS (2)
  1. REXULTI [Suspect]
     Active Substance: BREXPIPRAZOLE
     Indication: MAJOR DEPRESSION
     Dosage: 0.5 MG, QD
     Route: 065
     Dates: start: 2015
  2. REXULTI [Suspect]
     Active Substance: BREXPIPRAZOLE
     Dosage: UP TO 1 MG, QD
     Route: 048
     Dates: end: 2015

REACTIONS (3)
  - Peripheral swelling [Unknown]
  - Joint swelling [Unknown]
  - Palpitations [Unknown]

NARRATIVE: CASE EVENT DATE: 2015
